FAERS Safety Report 11887843 (Version 1)
Quarter: 2016Q1

REPORT INFORMATION
  Report Type: Spontaneous
  Country: US (occurrence: US)
  Receive Date: 20160105
  Receipt Date: 20160105
  Transmission Date: 20160526
  Serious: No
  Sender: FDA-Public Use
  Company Number: US-DRREDDYS-USA/USA/15/0047072

PATIENT
  Age: 56 Year
  Sex: Female
  Weight: 66.6 kg

DRUGS (1)
  1. HABITROL [Suspect]
     Active Substance: NICOTINE
     Indication: SMOKING CESSATION THERAPY
     Route: 061
     Dates: start: 20150325

REACTIONS (4)
  - Nicotine dependence [Not Recovered/Not Resolved]
  - Tobacco withdrawal symptoms [Not Recovered/Not Resolved]
  - Product quality issue [Unknown]
  - Depression [Not Recovered/Not Resolved]
